FAERS Safety Report 4963761-9 (Version None)
Quarter: 2006Q1

REPORT INFORMATION
  Report Type: 
  Country: None (occurrence: None)
  Receive Date: 20060330
  Receipt Date: 20060310
  Transmission Date: 20060701
  Serious: Yes (Hospitalization)
  Sender: FDA-Public Use
  Company Number: FR200603002747

PATIENT
  Age: 77 Year
  Sex: Female

DRUGS (9)
  1. FORTEO [Suspect]
     Indication: OSTEOPOROSIS
     Dosage: 20 UG DAILY (1/D), SUBCUTANEOUS
     Route: 058
     Dates: start: 20050928
  2. FORTEO [Concomitant]
  3. PERINDOPRIL ERUMINE [Concomitant]
  4. SECTRAL [Concomitant]
  5. PREDNISONE TAB [Concomitant]
  6. STRUCTUM (CHONDROITIN SULFATE SODIUM) [Concomitant]
  7. PREVISCAN (FLUINDIONE) [Concomitant]
  8. AMLODIPINE BESYLATE [Concomitant]
  9. EUPRESSYL (URAPIDIL) [Concomitant]

REACTIONS (6)
  - FALL [None]
  - LOSS OF CONSCIOUSNESS [None]
  - MALAISE [None]
  - SEPSIS [None]
  - URINARY TRACT INFECTION [None]
  - WRIST FRACTURE [None]
